FAERS Safety Report 8019291-3 (Version None)
Quarter: 2012Q1

REPORT INFORMATION
  Report Type: 
  Country: None (occurrence: None)
  Receive Date: 20120103
  Receipt Date: 20111223
  Transmission Date: 20120608
  Serious: Yes (Other)
  Sender: FDA-Public Use
  Company Number: KR-ELI_LILLY_AND_COMPANY-KR201112007182

PATIENT
  Age: 58 Year
  Sex: Male

DRUGS (1)
  1. HUMALOG MIX 75/25 [Suspect]
     Indication: DIABETES MELLITUS
     Dosage: 65 U, QD
     Route: 058
     Dates: start: 20111129

REACTIONS (2)
  - COMA HEPATIC [None]
  - ASTHENIA [None]
